FAERS Safety Report 21850479 (Version 1)
Quarter: 2023Q1

REPORT INFORMATION
  Report Type: Spontaneous
  Country: US (occurrence: US)
  Receive Date: 20230111
  Receipt Date: 20230111
  Transmission Date: 20230418
  Serious: No
  Sender: FDA-Public Use
  Company Number: US-PFIZER INC-202300011680

PATIENT
  Age: 60 Year
  Sex: Male
  Weight: 84.82 kg

DRUGS (3)
  1. PAXLOVID [Suspect]
     Active Substance: NIRMATRELVIR\RITONAVIR
     Indication: COVID-19 treatment
     Dosage: UNK, 2X/DAY (TWICE A DAY, ONCE IN THE MORNING ONCE AT NIGHT)
     Route: 048
     Dates: start: 20221213
  2. AMLODIPINE [Concomitant]
     Active Substance: AMLODIPINE BESYLATE
     Indication: Blood pressure abnormal
     Dosage: 0.05 MG
  3. IRBESARTAN [Concomitant]
     Active Substance: IRBESARTAN
     Dosage: 45 MG

REACTIONS (4)
  - Dysgeusia [Unknown]
  - Tinnitus [Not Recovered/Not Resolved]
  - Insomnia [Unknown]
  - Neuralgia [Unknown]

NARRATIVE: CASE EVENT DATE: 20221201
